FAERS Safety Report 14121749 (Version 2)
Quarter: 2017Q4

REPORT INFORMATION
  Report Type: Report from Study
  Country: MX (occurrence: MX)
  Receive Date: 20171024
  Receipt Date: 20171116
  Transmission Date: 20180321
  Serious: Yes (Other)
  Sender: FDA-Public Use
  Company Number: PHHY2017MX095817

PATIENT
  Age: 8 Year
  Sex: Male
  Weight: 25 kg

DRUGS (3)
  1. RITALIN LA [Suspect]
     Active Substance: METHYLPHENIDATE HYDROCHLORIDE
     Indication: ATTENTION DEFICIT/HYPERACTIVITY DISORDER
     Dosage: 20 MG, QD (1 YEARS AND 2 MONTHS AGO)
     Route: 065
     Dates: start: 2016
  2. URSODEOXYCHOLIC ACID [Concomitant]
     Active Substance: URSODIOL
     Indication: CONGENITAL ABSENCE OF BILE DUCTS
     Dosage: 375 MG (125 MG IN THE MORNING AND 250 MG IN  THE AFTERNOON), UNK
     Route: 048
  3. RITALIN [Suspect]
     Active Substance: METHYLPHENIDATE HYDROCHLORIDE
     Indication: PRODUCT USED FOR UNKNOWN INDICATION
     Route: 065

REACTIONS (7)
  - Abnormal behaviour [Not Recovered/Not Resolved]
  - Distractibility [Unknown]
  - Restlessness [Not Recovered/Not Resolved]
  - Hypertension [Unknown]
  - Liver injury [Not Recovered/Not Resolved]
  - Weight decreased [Unknown]
  - Logorrhoea [Unknown]

NARRATIVE: CASE EVENT DATE: 201708
